FAERS Safety Report 4437369-8 (Version None)
Quarter: 2004Q3

REPORT INFORMATION
  Report Type: 
  Country: None (occurrence: None)
  Receive Date: 20040726
  Receipt Date: 20040401
  Transmission Date: 20050211
  Serious: No
  Sender: FDA-Public Use
  Company Number: USA040463811

PATIENT
  Age: 64 Year
  Sex: Female

DRUGS (3)
  1. FORTEO [Suspect]
     Dates: start: 20031229
  2. VITAMIN E [Concomitant]
  3. POTASSIUM CHLORIDE [Concomitant]

REACTIONS (8)
  - ACCIDENTAL OVERDOSE [None]
  - DIZZINESS [None]
  - DYSPNOEA [None]
  - MEDICATION ERROR [None]
  - MYALGIA [None]
  - PAIN [None]
  - PALLOR [None]
  - SOMNOLENCE [None]
